FAERS Safety Report 20449606 (Version 5)
Quarter: 2022Q2

REPORT INFORMATION
  Report Type: Spontaneous
  Country: BE (occurrence: None)
  Receive Date: 20220209
  Receipt Date: 20220524
  Transmission Date: 20220721
  Serious: Yes (Hospitalization, Other)
  Sender: FDA-Public Use
  Company Number: BE-Accord-251404

PATIENT
  Age: 84 Year
  Sex: Female
  Weight: 62.9 kg

DRUGS (40)
  1. GEMCITABINE [Suspect]
     Active Substance: GEMCITABINE
     Indication: Product used for unknown indication
     Dosage: 1Q2W
     Route: 042
     Dates: start: 20220103
  2. GEMCITABINE [Suspect]
     Active Substance: GEMCITABINE
     Dosage: 1Q2W
     Route: 042
     Dates: start: 20211115, end: 20211213
  3. OXALIPLATIN [Suspect]
     Active Substance: OXALIPLATIN
     Indication: Product used for unknown indication
     Dosage: 1Q2W
     Route: 042
     Dates: start: 20211115, end: 20211213
  4. OXALIPLATIN [Suspect]
     Active Substance: OXALIPLATIN
     Dosage: 1Q2W
     Route: 042
     Dates: start: 20220103
  5. RITUXIMAB [Suspect]
     Active Substance: RITUXIMAB
     Indication: Product used for unknown indication
     Dosage: 1Q2W
     Route: 042
     Dates: start: 20220103
  6. RITUXIMAB [Suspect]
     Active Substance: RITUXIMAB
     Dosage: 1Q2W
     Route: 042
     Dates: start: 20211115, end: 20211213
  7. PEGFILGRASTIM [Concomitant]
     Active Substance: PEGFILGRASTIM
     Indication: Product used for unknown indication
     Route: 065
     Dates: start: 20211116
  8. METHYLPREDNISOLONE SODIUM SUCCINATE [Concomitant]
     Active Substance: METHYLPREDNISOLONE SODIUM SUCCINATE
     Indication: Product used for unknown indication
     Route: 042
     Dates: start: 20211115
  9. METHYLPREDNISOLONE SODIUM SUCCINATE [Concomitant]
     Active Substance: METHYLPREDNISOLONE SODIUM SUCCINATE
     Route: 042
     Dates: start: 20211129
  10. METHYLPREDNISOLONE SODIUM SUCCINATE [Concomitant]
     Active Substance: METHYLPREDNISOLONE SODIUM SUCCINATE
     Route: 042
     Dates: start: 20211213
  11. ATORVASTATIN CALCIUM [Concomitant]
     Active Substance: ATORVASTATIN CALCIUM
     Indication: Product used for unknown indication
     Dates: start: 20200824
  12. NEBIVOLOL [Concomitant]
     Active Substance: NEBIVOLOL
     Indication: Product used for unknown indication
     Route: 065
     Dates: start: 20211115
  13. ASPIRIN [Concomitant]
     Active Substance: ASPIRIN
     Indication: Product used for unknown indication
     Route: 065
     Dates: start: 20120214
  14. PALONOSETRON [Concomitant]
     Active Substance: PALONOSETRON
     Indication: Product used for unknown indication
     Route: 065
     Dates: start: 20211115
  15. MAGNESIUM [Concomitant]
     Active Substance: MAGNESIUM
     Indication: Product used for unknown indication
     Route: 065
     Dates: start: 20210611
  16. DEXPANTHENOL [Concomitant]
     Active Substance: DEXPANTHENOL
     Indication: Product used for unknown indication
     Route: 065
     Dates: start: 20211229, end: 20211231
  17. DEXPANTHENOL [Concomitant]
     Active Substance: DEXPANTHENOL
     Route: 065
     Dates: start: 20211229
  18. SPIRONOLACTONE [Concomitant]
     Active Substance: SPIRONOLACTONE
     Indication: Product used for unknown indication
     Route: 065
     Dates: start: 20201219, end: 20211115
  19. RASBURICASE [Concomitant]
     Active Substance: RASBURICASE
     Indication: Product used for unknown indication
     Route: 065
     Dates: start: 20211115, end: 20211115
  20. HYDROCHLOROTHIAZIDE/NEBIVOLOL HYDROCHLORIDE [Concomitant]
     Indication: Product used for unknown indication
     Route: 065
     Dates: start: 20201211
  21. CETIRIZINE HYDROCHLORIDE [Concomitant]
     Active Substance: CETIRIZINE HYDROCHLORIDE
     Indication: Product used for unknown indication
     Route: 065
     Dates: start: 20211115
  22. POLYETHYLENE GLYCOL 3350\POTASSIUM CHLORIDE\SODIUM BICARBONATE\SODIUM [Concomitant]
     Active Substance: POLYETHYLENE GLYCOL 3350\POTASSIUM CHLORIDE\SODIUM BICARBONATE\SODIUM CHLORIDE
     Indication: Product used for unknown indication
     Route: 065
     Dates: start: 20200928
  23. METFORMIN [Concomitant]
     Active Substance: METFORMIN HYDROCHLORIDE
     Indication: Product used for unknown indication
     Dates: start: 20210813
  24. ACETAMINOPHEN [Concomitant]
     Active Substance: ACETAMINOPHEN
     Indication: Product used for unknown indication
     Route: 065
     Dates: start: 20211115
  25. ALIZAPRIDE [Concomitant]
     Active Substance: ALIZAPRIDE
     Indication: Product used for unknown indication
     Dosage: DOSE: 150 MG
     Route: 065
     Dates: start: 20211117
  26. ALIZAPRIDE [Concomitant]
     Active Substance: ALIZAPRIDE
     Indication: Product used for unknown indication
  27. NITROGLYCERIN [Concomitant]
     Active Substance: NITROGLYCERIN
     Indication: Product used for unknown indication
     Route: 065
     Dates: start: 20120214
  28. LIDOCAINE [Concomitant]
     Active Substance: LIDOCAINE
     Indication: Product used for unknown indication
     Route: 065
     Dates: start: 20211230
  29. FOLIC ACID [Concomitant]
     Active Substance: FOLIC ACID
     Indication: Product used for unknown indication
     Route: 065
     Dates: start: 20211231
  30. LIDOCAINE HYDROCHLORIDE/CHLORHEXIDINE GLUCONATE [Concomitant]
     Indication: Product used for unknown indication
     Route: 065
     Dates: start: 20211230
  31. ASTEMIZOLE [Concomitant]
     Active Substance: ASTEMIZOLE
     Indication: Product used for unknown indication
     Route: 065
     Dates: start: 20210104, end: 20210105
  32. MIRTAZAPINE [Concomitant]
     Active Substance: MIRTAZAPINE
     Indication: Product used for unknown indication
     Route: 065
     Dates: start: 20211215
  33. MIRTAZAPINE [Concomitant]
     Active Substance: MIRTAZAPINE
     Route: 065
     Dates: start: 20211215, end: 20220131
  34. HUMAN IMMUNOGLOBULIN G [Concomitant]
     Active Substance: HUMAN IMMUNOGLOBULIN G
     Indication: Product used for unknown indication
     Route: 065
     Dates: start: 20220107, end: 20220107
  35. HUMAN IMMUNOGLOBULIN G [Concomitant]
     Active Substance: HUMAN IMMUNOGLOBULIN G
     Route: 065
     Dates: start: 20220107, end: 20220201
  36. MAGNESIUM CITRATE [Concomitant]
     Active Substance: MAGNESIUM CITRATE
     Indication: Product used for unknown indication
     Route: 065
     Dates: start: 20220202, end: 20220204
  37. DEXTROMETHORPHAN HYDROBROMIDE [Concomitant]
     Active Substance: DEXTROMETHORPHAN HYDROBROMIDE
     Indication: Product used for unknown indication
     Route: 065
     Dates: start: 20220102
  38. POTASSIUM GLUCONATE [Concomitant]
     Active Substance: POTASSIUM GLUCONATE
     Indication: Product used for unknown indication
     Route: 065
     Dates: start: 20220201, end: 20220203
  39. MIRTAZAPINE [Concomitant]
     Active Substance: MIRTAZAPINE
     Indication: Product used for unknown indication
     Route: 065
     Dates: start: 20220201, end: 20220203
  40. LOPERAMIDE HYDROCHLORIDE [Concomitant]
     Active Substance: LOPERAMIDE HYDROCHLORIDE
     Indication: Product used for unknown indication
     Route: 065
     Dates: start: 20220118

REACTIONS (4)
  - Gastric ulcer [Not Recovered/Not Resolved]
  - Pneumonia [Recovered/Resolved]
  - Decreased appetite [Not Recovered/Not Resolved]
  - Off label use [Unknown]

NARRATIVE: CASE EVENT DATE: 20211115
